FAERS Safety Report 14012602 (Version 1)
Quarter: 2017Q3

REPORT INFORMATION
  Report Type: Spontaneous
  Country: US (occurrence: US)
  Receive Date: 20170926
  Receipt Date: 20170926
  Transmission Date: 20171128
  Serious: No
  Sender: FDA-Public Use
  Company Number: US-TEVA-808698USA

PATIENT
  Sex: Male

DRUGS (2)
  1. ALBUTEROL. [Concomitant]
     Active Substance: ALBUTEROL
  2. PROAIR HFA [Suspect]
     Active Substance: ALBUTEROL SULFATE
     Dosage: 1-2 PUFFS A DAY
     Dates: start: 201707

REACTIONS (2)
  - Urinary tract disorder [Unknown]
  - Urine flow decreased [Unknown]

NARRATIVE: CASE EVENT DATE: 201708
